FAERS Safety Report 8963599 (Version 1)
Quarter: 2012Q4

REPORT INFORMATION
  Report Type: 
  Country: US (occurrence: US)
  Receive Date: 20121214
  Receipt Date: 20121214
  Transmission Date: 20130627
  Serious: No
  Sender: FDA-Public Use
  Company Number: 2009BI009923

PATIENT
  Age: 60 Year
  Sex: Female

DRUGS (2)
  1. TYSABRI [Suspect]
     Indication: MULTIPLE SCLEROSIS
     Route: 042
     Dates: start: 20080117
  2. BONIVA [Concomitant]
     Indication: OSTEOARTHRITIS
     Dates: start: 2008, end: 2009

REACTIONS (2)
  - Dyspepsia [Not Recovered/Not Resolved]
  - Osteoarthritis [Not Recovered/Not Resolved]
